FAERS Safety Report 9501368 (Version 1)
Quarter: 2013Q1

REPORT INFORMATION
  Report Type: Spontaneous
  Country: US (occurrence: None)
  Receive Date: 20130225
  Receipt Date: 20130225
  Transmission Date: 20140127
  Serious: Yes (Other)
  Sender: FDA-Public Use
  Company Number: 2012-472

PATIENT
  Age: 59 Year
  Sex: Female

DRUGS (1)
  1. PRIALT [Suspect]
     Route: 037

REACTIONS (1)
  - Urinary retention [None]
